FAERS Safety Report 4653527-1 (Version None)
Quarter: 2005Q2

REPORT INFORMATION
  Report Type: 
  Country: None (occurrence: None)
  Receive Date: 20050404
  Receipt Date: 20050114
  Transmission Date: 20051028
  Serious: No
  Sender: FDA-Public Use
  Company Number: USA050188441

PATIENT
  Sex: Female

DRUGS (4)
  1. CYMBALTA [Suspect]
     Dosage: 40 MG DAY
     Dates: start: 20050109
  2. XANAX (ALPRAZOLAM DUM) [Concomitant]
  3. NEXIUM [Concomitant]
  4. ENTOCORT (BUDESONIDE) [Concomitant]

REACTIONS (4)
  - CHEST PAIN [None]
  - FEELING ABNORMAL [None]
  - INSOMNIA [None]
  - NAUSEA [None]
